FAERS Safety Report 7001568-1 (Version None)
Quarter: 2010Q3

REPORT INFORMATION
  Report Type: 
  Country: None (occurrence: None)
  Receive Date: 20100916
  Receipt Date: 20100907
  Transmission Date: 20110219
  Serious: Yes (Death, Hospitalization)
  Sender: FDA-Public Use
  Company Number: 688939

PATIENT
  Age: 60 Year
  Sex: Female
  Weight: 90.7 kg

DRUGS (3)
  1. NIPENT [Suspect]
     Indication: CHRONIC LYMPHOCYTIC LEUKAEMIA
     Dosage: 8 MG, TOTAL DOSE ADMINISTERED THIS COURSE
     Dates: start: 20100830, end: 20100830
  2. CYCLOPHOSPHAMIDE [Suspect]
     Indication: CHRONIC LYMPHOCYTIC LEUKAEMIA
     Dosage: 1200 MG, TOTAL DOSE ADMINISTERED THIS COURSE
     Dates: start: 20100830, end: 20100830
  3. RITUXIMAB [Suspect]
     Indication: CHRONIC LYMPHOCYTIC LEUKAEMIA
     Dosage: 750 MG, TOTAL DOSE ADMINISTERED THIS COURSE
     Dates: start: 20100830, end: 20100830

REACTIONS (4)
  - ACUTE PULMONARY OEDEMA [None]
  - ELECTROMECHANICAL DISSOCIATION [None]
  - OXYGEN SATURATION DECREASED [None]
  - RESPIRATORY DISORDER [None]
